FAERS Safety Report 20884837 (Version 1)
Quarter: 2022Q2

REPORT INFORMATION
  Report Type: Spontaneous
  Country: US (occurrence: None)
  Receive Date: 20220527
  Receipt Date: 20220527
  Transmission Date: 20220720
  Serious: Yes (Death)
  Sender: FDA-Public Use
  Company Number: None

PATIENT
  Age: 52 Year
  Sex: Female

DRUGS (9)
  1. AMBRISENTAN [Suspect]
     Active Substance: AMBRISENTAN
     Indication: Pulmonary arterial hypertension
     Dosage: FREQUENCY : DAILY;?
     Route: 048
  2. LASIX [Concomitant]
     Active Substance: FUROSEMIDE
  3. LETAIRIS [Concomitant]
     Active Substance: AMBRISENTAN
  4. GABAPENTIN [Concomitant]
     Active Substance: GABAPENTIN
  5. POTASSIUM [Concomitant]
     Active Substance: POTASSIUM
  6. ALLOPURINOL [Concomitant]
     Active Substance: ALLOPURINOL
  7. DIGOXIN [Concomitant]
     Active Substance: DIGOXIN
  8. ADCIRCA [Concomitant]
     Active Substance: TADALAFIL
  9. ORENITRAM [Concomitant]
     Active Substance: TREPROSTINIL

REACTIONS (1)
  - Death [None]

NARRATIVE: CASE EVENT DATE: 20220527
